FAERS Safety Report 9367409 (Version 2)
Quarter: 2013Q4

REPORT INFORMATION
  Report Type: Spontaneous
  Country: US (occurrence: US)
  Receive Date: 20130625
  Receipt Date: 20131210
  Transmission Date: 20140711
  Serious: Yes (Hospitalization, Other)
  Sender: FDA-Public Use
  Company Number: US-B.I. PHARMACEUTICALS,INC./RIDGEFIELD-2013-BI-17938BP

PATIENT
  Age: 75 Year
  Sex: Male
  Weight: 90.72 kg

DRUGS (20)
  1. PRADAXA [Suspect]
     Indication: ANTICOAGULANT THERAPY
     Dates: start: 20111019, end: 20120411
  2. VITAMIN D [Concomitant]
     Dosage: 1000 MG
     Route: 048
  3. CUCURMIN [Concomitant]
     Dosage: 1500 MG
  4. B12 [Concomitant]
     Dosage: 1000 MG
  5. ENTOCORT EC [Concomitant]
     Dosage: 3 MG
     Route: 048
  6. FENISTRIDE [Concomitant]
     Dosage: 5 MG
  7. FORTICAL NASAL [Concomitant]
  8. LEXAPRO [Concomitant]
     Route: 048
  9. METOPROLOL TARTRATE [Concomitant]
     Dosage: 50 MG
     Route: 048
  10. MIRALAX [Concomitant]
     Route: 048
  11. MULTIVITAMIN [Concomitant]
     Route: 048
  12. NIACIN [Concomitant]
     Route: 048
  13. POTASSIUM CHLORIDE [Concomitant]
     Route: 048
  14. RANITIDINE HCL [Concomitant]
     Route: 048
  15. SIMETHICONE [Concomitant]
     Dosage: 125 MG
     Route: 048
  16. SIMVASTATIN [Concomitant]
     Route: 048
  17. STOOL SOFTENER [Concomitant]
     Dosage: 100 MG
     Route: 048
  18. TAMSULOSIN [Concomitant]
     Dosage: 0.4 MG
     Route: 048
  19. TEMAZEPAM [Concomitant]
     Route: 048
  20. TORSEMIDE [Concomitant]
     Dosage: 20 MG
     Route: 048

REACTIONS (2)
  - Traumatic haemorrhage [Unknown]
  - Anaemia [Unknown]
